FAERS Safety Report 8764645 (Version 1)
Quarter: 2012Q4

REPORT INFORMATION
  Report Type: 
  Country: US (occurrence: US)
  Receive Date: 20120831
  Receipt Date: 20120831
  Transmission Date: 20130627
  Serious: Yes (Hospitalization)
  Sender: FDA-Public Use
  Company Number: US-TEVA-356356USA

PATIENT
  Sex: Male

DRUGS (2)
  1. TREANDA [Suspect]
     Route: 042
  2. UNSPECIFIED INGREDIENT [Suspect]

REACTIONS (1)
  - Pancreatitis [Unknown]
